FAERS Safety Report 8816741 (Version 2)
Quarter: 2012Q4

REPORT INFORMATION
  Report Type: 
  Country: US (occurrence: None)
  Receive Date: 20121001
  Receipt Date: 20121022
  Transmission Date: 20130627
  Serious: Yes (Hospitalization)
  Sender: FDA-Public Use
  Company Number: JPI-P-025187

PATIENT
  Age: 57 Year
  Sex: Male

DRUGS (5)
  1. XYREM [Suspect]
     Indication: NARCOLEPSY
     Dosage: (2.25 gm, 2 in 1 D)
     Route: 048
     Dates: start: 20120515
  2. XYREM [Suspect]
     Indication: NARCOLEPSY
     Dosage: (UNSPECIFIED TITRATING DOSE)
     Dates: start: 2012
  3. XYREM [Suspect]
     Indication: NARCOLEPSY
     Dosage: (4.5 GM, 2 IN 1 D)
     Route: 048
     Dates: start: 20120802, end: 20120904
  4. XYREM [Suspect]
     Indication: NARCOLEPSY
  5. XYREM [Suspect]
     Indication: NARCOLEPSY

REACTIONS (4)
  - Coronary artery stenosis [None]
  - Chest discomfort [None]
  - Dyspepsia [None]
  - Asthenia [None]
